FAERS Safety Report 7627852-6 (Version None)
Quarter: 2011Q3

REPORT INFORMATION
  Report Type: 
  Country: None (occurrence: None)
  Receive Date: 20110721
  Receipt Date: 20110718
  Transmission Date: 20111222
  Serious: Yes (Other)
  Sender: FDA-Public Use
  Company Number: CN-BAYER-2011-062322

PATIENT
  Age: 97 Year
  Sex: Male

DRUGS (5)
  1. BENIDIPINE [Concomitant]
  2. REPAGLINIDE [Concomitant]
  3. AVELOX [Suspect]
     Indication: UPPER RESPIRATORY TRACT INFECTION
     Dosage: 400 MG, QD
     Route: 041
     Dates: start: 20081102
  4. ACARBOSE [Concomitant]
  5. CARVEDILOL [Concomitant]

REACTIONS (4)
  - DEPRESSED LEVEL OF CONSCIOUSNESS [None]
  - DELIRIUM [None]
  - HALLUCINATION [None]
  - SPEECH DISORDER [None]
